FAERS Safety Report 12370317 (Version 1)
Quarter: 2016Q2

REPORT INFORMATION
  Report Type: Spontaneous
  Country: US (occurrence: None)
  Receive Date: 20160513
  Receipt Date: 20160513
  Transmission Date: 20160815
  Serious: No
  Sender: FDA-Public Use
  Company Number: None

PATIENT
  Age: 82 Year
  Sex: Female

DRUGS (5)
  1. INLYTA [Suspect]
     Active Substance: AXITINIB
     Indication: RENAL CANCER
     Route: 048
     Dates: start: 201507
  2. PROBIOTIC CAPSULES [Concomitant]
     Active Substance: PROBIOTICS NOS
  3. LEVORPHANOL [Concomitant]
     Active Substance: LEVORPHANOL
  4. MULTI 50+ TAB [Concomitant]
  5. WARFARIN [Concomitant]
     Active Substance: WARFARIN

REACTIONS (1)
  - Diarrhoea [None]
